FAERS Safety Report 21240343 (Version 1)
Quarter: 2022Q3

REPORT INFORMATION
  Report Type: Spontaneous
  Country: ES (occurrence: None)
  Receive Date: 20220822
  Receipt Date: 20220822
  Transmission Date: 20221027
  Serious: Yes (Hospitalization, Other)
  Sender: FDA-Public Use
  Company Number: 2022A292795

PATIENT
  Age: 81 Year
  Sex: Female

DRUGS (16)
  1. OMEPRAZOLE [Suspect]
     Active Substance: OMEPRAZOLE
     Route: 048
  2. ACENOCOUMAROL [Suspect]
     Active Substance: ACENOCOUMAROL
     Indication: Anticoagulant therapy
     Route: 065
     Dates: start: 2013
  3. APIXABAN [Suspect]
     Active Substance: APIXABAN
     Route: 065
  4. ATORVASTATIN [Suspect]
     Active Substance: ATORVASTATIN
     Indication: Anticoagulant therapy
     Route: 065
  5. AMLODIPINE [Suspect]
     Active Substance: AMLODIPINE BESYLATE
     Indication: Anticoagulant therapy
     Route: 065
  6. BETAMETHASONE DIPROPIONATE\CALCIPOTRIENE [Suspect]
     Active Substance: BETAMETHASONE DIPROPIONATE\CALCIPOTRIENE
     Dosage: 50 MCG
  7. BRINZOLAMIDE [Suspect]
     Active Substance: BRINZOLAMIDE
     Route: 065
  8. CHOLECALCIFEROL [Suspect]
     Active Substance: CHOLECALCIFEROL
     Dosage: 25000 IU (INTERNATIONAL UNIT) IN 1 MONTH
     Route: 065
  9. ENALAPRIL [Suspect]
     Active Substance: ENALAPRIL
     Route: 065
  10. EPLERENONE [Suspect]
     Active Substance: EPLERENONE
     Route: 065
  11. EPLERENONE [Suspect]
     Active Substance: EPLERENONE
     Dosage: 1 DOSAGE FORM IN 1 DAY
  12. FUROSEMIDE [Suspect]
     Active Substance: FUROSEMIDE
     Route: 065
  13. IBANDRONIC ACID [Suspect]
     Active Substance: IBANDRONIC ACID
     Route: 065
  14. METILDIGOXIN [Suspect]
     Active Substance: METILDIGOXIN
     Route: 065
  15. MOMETASONE [Suspect]
     Active Substance: MOMETASONE
     Dosage: 0.1% OINTMENT
  16. ACETAMINOPHEN [Concomitant]
     Active Substance: ACETAMINOPHEN
     Dosage: PARACETAMOL ON DEMAND, WITH ACENOCOUMAROL BEING SUSPENDED
     Route: 065

REACTIONS (4)
  - Wound haemorrhage [Unknown]
  - Bradycardia [Unknown]
  - Dyspnoea [Unknown]
  - Dizziness [Unknown]

NARRATIVE: CASE EVENT DATE: 20220301
